FAERS Safety Report 7577642-8 (Version None)
Quarter: 2011Q2

REPORT INFORMATION
  Report Type: 
  Country: None (occurrence: None)
  Receive Date: 20110628
  Receipt Date: 20110620
  Transmission Date: 20111010
  Serious: Yes (Other)
  Sender: FDA-Public Use
  Company Number: US-PFIZER INC-2011090598

PATIENT
  Sex: Male
  Weight: 78.005 kg

DRUGS (17)
  1. AMBIEN [Concomitant]
     Indication: SLEEP DISORDER
     Dosage: 10 MG, 1X/DAY
     Route: 048
     Dates: start: 20061107
  2. FISH OIL [Concomitant]
     Indication: MEDICAL DIET
     Dosage: 500 MG, 2X/DAY
     Route: 048
     Dates: start: 20060906
  3. FLAXSEED OIL [Concomitant]
     Indication: MEDICAL DIET
     Dosage: UNK
     Route: 048
     Dates: start: 20050420
  4. SUSTIVA [Concomitant]
     Indication: HIV INFECTION
     Dosage: 600 MG, 1X/DAY
     Route: 048
     Dates: start: 20100609
  5. NEURONTIN [Concomitant]
     Indication: PAIN
     Dosage: 100 MG, 1X/DAY
     Route: 048
     Dates: start: 20100602
  6. LORCET-HD [Concomitant]
     Indication: PAIN
     Dosage: UNK
     Route: 048
     Dates: start: 20100217
  7. GLUCOSAMINE [Concomitant]
     Indication: ARTHRITIS
     Dosage: 500-400 MG
     Route: 048
     Dates: start: 20080517
  8. POTASSIUM PHOSPHATES [Concomitant]
     Indication: OSTEOPOROSIS
     Dosage: 305-700 MG EVERY 6 HRS
     Route: 048
     Dates: start: 20100602
  9. MULTIVITAMIN ^LAPPE^ [Concomitant]
     Indication: MEDICAL DIET
     Dosage: UNK
     Route: 048
  10. KETOPROFEN [Concomitant]
     Indication: ARTHRITIS
     Dosage: 20 %, 4X/DAY
     Route: 061
     Dates: start: 20090521
  11. OXYCONTIN [Concomitant]
     Indication: PAIN
     Dosage: 20 MG, AS NEEDED
     Route: 048
     Dates: start: 20050612
  12. PERCOCET [Concomitant]
     Indication: PAIN
     Dosage: 10-325 MG
     Route: 048
     Dates: start: 20090225
  13. MOROCTOCOG ALFA [Suspect]
     Indication: FACTOR VIII DEFICIENCY
     Dosage: 1990 IU (FREQUENCY NOT PROVIDED
     Route: 042
     Dates: start: 20100616
  14. PREZISTA [Concomitant]
     Indication: HIV INFECTION
     Dosage: 400 MG, 1X/DAY
     Route: 048
     Dates: start: 20100609
  15. NORVIR [Concomitant]
     Indication: HIV INFECTION
     Dosage: 100 MG, 1X/DAY
     Route: 048
     Dates: start: 20100609
  16. MOROCTOCOG ALFA [Suspect]
     Dosage: 2060 IU, ON DEMAND
     Route: 042
     Dates: start: 20100620, end: 20100621
  17. EMTRICITABINE [Concomitant]
     Indication: HIV INFECTION
     Dosage: 20 MG, 1X/DAY
     Route: 048
     Dates: start: 20100609

REACTIONS (1)
  - DRUG EFFECT DECREASED [None]
